FAERS Safety Report 9948696 (Version 2)
Quarter: 2014Q2

REPORT INFORMATION
  Report Type: Spontaneous
  Country: US (occurrence: US)
  Receive Date: 20140304
  Receipt Date: 20140613
  Transmission Date: 20141212
  Serious: Yes (Hospitalization)
  Sender: FDA-Public Use
  Company Number: US-ROCHE-1356848

PATIENT
  Sex: Female

DRUGS (10)
  1. NUTROPIN [Suspect]
     Indication: DWARFISM
     Route: 058
     Dates: start: 20140223
  2. NUTROPIN [Suspect]
     Route: 058
     Dates: start: 20140226
  3. XOPENEX HFA [Concomitant]
  4. PULMICORT [Concomitant]
  5. PREVACID [Concomitant]
  6. ZYRTEC [Concomitant]
  7. FLONASE [Concomitant]
  8. CORTEF [Concomitant]
  9. SINGULAIR [Concomitant]
  10. OMNICEF (CEFDINIR) [Concomitant]

REACTIONS (2)
  - Pyrexia [Unknown]
  - Contusion [Unknown]
